FAERS Safety Report 15879369 (Version 1)
Quarter: 2019Q1

REPORT INFORMATION
  Report Type: Spontaneous
  Country: US (occurrence: US)
  Receive Date: 20190126
  Receipt Date: 20190126
  Transmission Date: 20190417
  Serious: Yes (Hospitalization, Other)
  Sender: FDA-Public Use
  Company Number: None

PATIENT
  Age: 48 Year
  Sex: Female
  Weight: 75.6 kg

DRUGS (16)
  1. POTASSIUM 10 MEQ DAILY [Concomitant]
  2. LEVOTHRYROXINE 75 MICROGRAMS DAILY [Concomitant]
  3. PERCOCET 7.5 TID PRN [Concomitant]
  4. OXYCONTIN 20 MG PRN TWICE A DAY [Concomitant]
  5. BACLOFEN 10 MG TWICE A DAY [Concomitant]
  6. COREG 12.5 TWICE A DAY [Concomitant]
  7. AIMOVIG [Suspect]
     Active Substance: ERENUMAB-AOOE
     Indication: HEADACHE
     Dosage: ?          QUANTITY:1 PRE-FILLED SUB-Q S;OTHER FREQUENCY:MONTHLY;?
     Route: 058
     Dates: start: 20181120, end: 20190120
  8. LASIX 20 MG DAILY [Concomitant]
  9. FOLIC ACID DAILY [Concomitant]
  10. AMBIEN 10MG AT BEDTIME [Concomitant]
  11. 50 MG BENADRYL AT BEDTIME [Concomitant]
  12. GLEEVEC 400 MG ONCE DAILY [Concomitant]
  13. MULTIVITAMIN DAILY [Concomitant]
  14. EFFEXOR 150 MG DAILY [Concomitant]
  15. GLUCOSAINE CHONDROITIN DAILY [Concomitant]
  16. SAW PALMETTO DAILY [Concomitant]

REACTIONS (5)
  - Subdural haematoma [None]
  - Alopecia [None]
  - Brain midline shift [None]
  - Meningeal disorder [None]
  - Headache [None]

NARRATIVE: CASE EVENT DATE: 20190122
